FAERS Safety Report 15666420 (Version 2)
Quarter: 2018Q4

REPORT INFORMATION
  Report Type: Spontaneous
  Country: US (occurrence: US)
  Receive Date: 20181128
  Receipt Date: 20181211
  Transmission Date: 20190205
  Serious: No
  Sender: FDA-Public Use
  Company Number: US-SUNOVION-2018SUN004613

PATIENT
  Age: 46 Year
  Sex: Female

DRUGS (1)
  1. LATUDA [Suspect]
     Active Substance: LURASIDONE HYDROCHLORIDE
     Indication: BIPOLAR II DISORDER
     Dosage: 120 MG, UNK
     Route: 048
     Dates: start: 201807

REACTIONS (5)
  - Nasopharyngitis [Unknown]
  - Product administration error [Unknown]
  - Oligomenorrhoea [Unknown]
  - Metrorrhagia [Unknown]
  - Off label use [Unknown]

NARRATIVE: CASE EVENT DATE: 201807
